FAERS Safety Report 16099308 (Version 1)
Quarter: 2019Q1

REPORT INFORMATION
  Report Type: Spontaneous
  Country: ES (occurrence: ES)
  Receive Date: 20190321
  Receipt Date: 20190321
  Transmission Date: 20190418
  Serious: Yes (Hospitalization, Other)
  Sender: FDA-Public Use
  Company Number: ES-009507513-1903ESP007038

PATIENT
  Age: 80 Year
  Sex: Female

DRUGS (8)
  1. AZATHIOPRINE. [Concomitant]
     Active Substance: AZATHIOPRINE
  2. PREDNISONE. [Concomitant]
     Active Substance: PREDNISONE
  3. JANUMET [Suspect]
     Active Substance: METFORMIN HYDROCHLORIDE\SITAGLIPTIN PHOSPHATE
     Indication: TYPE 2 DIABETES MELLITUS
     Dosage: 1 TABLET PER 12 HOURS
     Route: 048
  4. APIXABAN [Concomitant]
     Active Substance: APIXABAN
  5. BISOPROLOL FUMARATE (+) HYDROCHLOROTHIAZIDE [Concomitant]
     Active Substance: BISOPROLOL FUMARATE\HYDROCHLOROTHIAZIDE
  6. JANUMET [Suspect]
     Active Substance: METFORMIN HYDROCHLORIDE\SITAGLIPTIN PHOSPHATE
     Dosage: UNK
  7. OXYGEN. [Concomitant]
     Active Substance: OXYGEN
  8. VITAMIN D [Concomitant]
     Active Substance: CHOLECALCIFEROL

REACTIONS (3)
  - Hip fracture [Unknown]
  - Pulmonary embolism [Unknown]
  - Cardiac failure acute [Unknown]
